FAERS Safety Report 8292795-4 (Version None)
Quarter: 2012Q2

REPORT INFORMATION
  Report Type: 
  Country: None (occurrence: None)
  Receive Date: 20120417
  Receipt Date: 20120126
  Transmission Date: 20120825
  Serious: No
  Sender: FDA-Public Use
  Company Number: US-ASTRAZENECA-2012SE05675

PATIENT
  Age: 55 Year
  Sex: Female
  Weight: 99.8 kg

DRUGS (3)
  1. NEXIUM [Suspect]
     Indication: GASTROOESOPHAGEAL REFLUX DISEASE
     Dosage: QD
     Route: 048
     Dates: start: 20070101, end: 20120101
  2. NAPROXEN (ALEVE) [Suspect]
     Indication: MYALGIA
     Dosage: DAILY
     Route: 065
  3. NAPROXEN (ALEVE) [Suspect]
     Indication: ARTHRALGIA
     Dosage: DAILY
     Route: 065

REACTIONS (8)
  - GAIT DISTURBANCE [None]
  - WEIGHT INCREASED [None]
  - PAIN [None]
  - ARTHRALGIA [None]
  - MYALGIA [None]
  - MUSCULOSKELETAL STIFFNESS [None]
  - PAIN IN EXTREMITY [None]
  - HIATUS HERNIA [None]
